FAERS Safety Report 15092989 (Version 5)
Quarter: 2019Q3

REPORT INFORMATION
  Report Type: Spontaneous
  Country: US (occurrence: US)
  Receive Date: 20180629
  Receipt Date: 20190722
  Transmission Date: 20191004
  Serious: Yes (Death, Other)
  Sender: FDA-Public Use
  Company Number: US-PFIZER INC-2018260495

PATIENT
  Age: 84 Year
  Sex: Female
  Weight: 61.22 kg

DRUGS (8)
  1. LETROZOLE. [Concomitant]
     Active Substance: LETROZOLE
     Indication: NEOPLASM MALIGNANT
     Dosage: 2.5 MG, UNK
  2. WARFARIN [Concomitant]
     Active Substance: WARFARIN
     Indication: ANTICOAGULANT THERAPY
     Dosage: 1 MG, UNK
  3. MEMANTINE. [Concomitant]
     Active Substance: MEMANTINE
     Indication: DEMENTIA
     Dosage: UNK
  4. IBRANCE [Suspect]
     Active Substance: PALBOCICLIB
     Indication: BREAST CANCER METASTATIC
     Dosage: UNK, CYCLIC
     Dates: start: 2016, end: 2016
  5. LORAZEPAM. [Concomitant]
     Active Substance: LORAZEPAM
     Indication: ANXIETY
     Dosage: UNK
  6. IBRANCE [Suspect]
     Active Substance: PALBOCICLIB
     Dosage: 125 MG, CYCLIC (FOR 14 DAYS THAT OFF 7 DAYS)
     Route: 048
     Dates: start: 20180623, end: 201806
  7. IBRANCE [Suspect]
     Active Substance: PALBOCICLIB
     Dosage: UNK, 2X/WEEK
     Dates: start: 201703, end: 201806
  8. RISPERIDONE. [Concomitant]
     Active Substance: RISPERIDONE
     Indication: HALLUCINATION
     Dosage: UNK

REACTIONS (8)
  - Condition aggravated [Recovering/Resolving]
  - Asthenia [Unknown]
  - Neoplasm progression [Fatal]
  - Dementia [Recovering/Resolving]
  - Confusional state [Unknown]
  - Lethargy [Recovering/Resolving]
  - Somnolence [Unknown]
  - Depressed level of consciousness [Unknown]

NARRATIVE: CASE EVENT DATE: 201806
